FAERS Safety Report 6906220-6 (Version None)
Quarter: 2010Q3

REPORT INFORMATION
  Report Type: 
  Country: None (occurrence: None)
  Receive Date: 20100804
  Receipt Date: 20100729
  Transmission Date: 20110219
  Serious: Yes (Hospitalization)
  Sender: FDA-Public Use
  Company Number: DE-AMGEN-KDC411814

PATIENT
  Sex: Male
  Weight: 115 kg

DRUGS (6)
  1. NPLATE [Suspect]
     Indication: IDIOPATHIC THROMBOCYTOPENIC PURPURA
     Route: 058
     Dates: start: 20090904
  2. PREDNISOLONE [Concomitant]
  3. BERLOSIN [Concomitant]
  4. ASPIRIN [Concomitant]
  5. LAMIVUDINE [Concomitant]
  6. CORTICOSTEROIDS [Concomitant]
     Dates: start: 20041201

REACTIONS (1)
  - ENDOCARDITIS [None]
